FAERS Safety Report 7275437-6 (Version None)
Quarter: 2011Q1

REPORT INFORMATION
  Report Type: 
  Country: None (occurrence: None)
  Receive Date: 20110202
  Receipt Date: 20110202
  Transmission Date: 20110831
  Serious: Yes (Hospitalization)
  Sender: FDA-Public Use
  Company Number: None

PATIENT
  Age: 63 Year
  Sex: Male

DRUGS (1)
  1. CEFTRIAXONE (ROCEPHIN) [Suspect]
     Indication: PNEUMONIA
     Dosage: 500 MG EVERY 8 HOURS IV
     Route: 042
     Dates: start: 20110106, end: 20110108

REACTIONS (2)
  - INTERNATIONAL NORMALISED RATIO INCREASED [None]
  - RASH FOLLICULAR [None]
